FAERS Safety Report 8378573 (Version 2)
Quarter: 2013Q1

REPORT INFORMATION
  Report Type: Report from Study
  Country: US (occurrence: US)
  Receive Date: 20120129
  Receipt Date: 20130130
  Transmission Date: 20140127
  Serious: Yes (Hospitalization)
  Sender: FDA-Public Use
  Company Number: US-ABBOTT-11P-163-0854779-00

PATIENT
  Age: 72 Year
  Sex: Female
  Weight: 99.88 kg

DRUGS (4)
  1. HUMIRA 40 MG/0.8 ML PEN [Suspect]
     Indication: PSORIASIS
     Dates: start: 201108, end: 20110822
  2. LASIX [Concomitant]
     Indication: PRODUCT USED FOR UNKNOWN INDICATION
  3. BLOOD PRESSURE PILL [Concomitant]
     Indication: PRODUCT USED FOR UNKNOWN INDICATION
  4. PILL FOR ANXIETY [Concomitant]
     Indication: PRODUCT USED FOR UNKNOWN INDICATION

REACTIONS (6)
  - Fall [Recovering/Resolving]
  - Pneumonia fungal [Recovering/Resolving]
  - Pneumonia [Recovering/Resolving]
  - Arthropathy [Recovering/Resolving]
  - Fall [Recovering/Resolving]
  - Rib fracture [Recovering/Resolving]
